FAERS Safety Report 5787441-5 (Version None)
Quarter: 2008Q2

REPORT INFORMATION
  Report Type: 
  Country: None (occurrence: None)
  Receive Date: 20080620
  Receipt Date: 20080612
  Transmission Date: 20081010
  Serious: Yes (Death, Hospitalization, Other)
  Sender: FDA-Public Use
  Company Number: 2008SP009002

PATIENT
  Age: 62 Year
  Sex: Male

DRUGS (6)
  1. TEMODAR [Suspect]
     Indication: GLIOMA
     Dosage: 140 MG; PO
     Route: 048
     Dates: start: 20071115, end: 20071204
  2. MULTI-VITAMINS [Concomitant]
  3. DEXAMETHASONE [Concomitant]
  4. PRILOSEC [Concomitant]
  5. KYTRIL [Concomitant]
  6. SEPTRA DS [Concomitant]

REACTIONS (5)
  - DISEASE PROGRESSION [None]
  - PNEUMONIA [None]
  - PYREXIA [None]
  - SEPSIS [None]
  - SYNCOPE [None]
